FAERS Safety Report 16432419 (Version 1)
Quarter: 2019Q3

REPORT INFORMATION
  Report Type: Spontaneous
  Country: US (occurrence: US)
  Receive Date: 20190614
  Receipt Date: 20190614
  Transmission Date: 20191004
  Serious: Yes (Death)
  Sender: FDA-Public Use
  Company Number: None

PATIENT
  Age: 63 Year
  Sex: Male

DRUGS (9)
  1. LAMOTRIGINE. [Concomitant]
     Active Substance: LAMOTRIGINE
  2. TAMSULOSIN [Concomitant]
     Active Substance: TAMSULOSIN
  3. RECLAST [Concomitant]
     Active Substance: ZOLEDRONIC ACID
  4. SILDENAFIL. [Suspect]
     Active Substance: SILDENAFIL
     Indication: PULMONARY HYPERTENSION
     Route: 048
     Dates: start: 20150401, end: 20190608
  5. TYVASO [Concomitant]
     Active Substance: TREPROSTINIL
  6. WARFARIN [Concomitant]
     Active Substance: WARFARIN
  7. MELOXICAM. [Concomitant]
     Active Substance: MELOXICAM
  8. OMEPRAZOLE. [Concomitant]
     Active Substance: OMEPRAZOLE
  9. LAMICTAL [Concomitant]
     Active Substance: LAMOTRIGINE

REACTIONS (1)
  - Death [None]

NARRATIVE: CASE EVENT DATE: 20190608
